FAERS Safety Report 25575548 (Version 3)
Quarter: 2025Q3

REPORT INFORMATION
  Report Type: Report from Study
  Country: BR (occurrence: BR)
  Receive Date: 20250718
  Receipt Date: 20250722
  Transmission Date: 20251020
  Serious: Yes (Other)
  Sender: JOHNSON AND JOHNSON
  Company Number: BR-JNJFOC-20250718034

PATIENT
  Age: 47 Year
  Sex: Male

DRUGS (3)
  1. INFLIXIMAB [Suspect]
     Active Substance: INFLIXIMAB
     Indication: Ankylosing spondylitis
     Route: 041
     Dates: start: 20250502
  2. INFLIXIMAB [Suspect]
     Active Substance: INFLIXIMAB
     Dosage: THE LAST ONE OCCURRED ON 02-MAY-2025
     Route: 041
     Dates: start: 20250502
  3. INFLIXIMAB [Suspect]
     Active Substance: INFLIXIMAB
     Indication: Ankylosing spondylitis
     Route: 041

REACTIONS (4)
  - Pneumonia [Recovering/Resolving]
  - Influenza [Recovering/Resolving]
  - Decreased immune responsiveness [Unknown]
  - Off label use [Unknown]

NARRATIVE: CASE EVENT DATE: 20250520
